FAERS Safety Report 7425231-8 (Version None)
Quarter: 2011Q2

REPORT INFORMATION
  Report Type: 
  Country: None (occurrence: None)
  Receive Date: 20110413
  Receipt Date: 20110406
  Transmission Date: 20111010
  Serious: Yes (Hospitalization, Disabling, Other)
  Sender: FDA-Public Use
  Company Number: 2009SP021082

PATIENT
  Age: 24 Year
  Sex: Female
  Weight: 62.5964 kg

DRUGS (3)
  1. NUVARING [Suspect]
     Indication: CONTRACEPTION
     Dates: start: 20041001, end: 20070824
  2. PAROXETINE HCL [Concomitant]
  3. PAXIL [Suspect]
     Indication: DEPRESSION

REACTIONS (61)
  - URINARY TRACT INFECTION [None]
  - NAUSEA [None]
  - INCISION SITE PAIN [None]
  - MUSCLE INJURY [None]
  - ABDOMINAL DISCOMFORT [None]
  - AFFECTIVE DISORDER [None]
  - INCORRECT DOSE ADMINISTERED [None]
  - ALCOHOL USE [None]
  - BLOOD CHOLESTEROL INCREASED [None]
  - INTERNATIONAL NORMALISED RATIO DECREASED [None]
  - BACK PAIN [None]
  - DRUG DOSE OMISSION [None]
  - ABDOMINAL DISTENSION [None]
  - OVARIAN CYST RUPTURED [None]
  - LOW DENSITY LIPOPROTEIN INCREASED [None]
  - RASH PRURITIC [None]
  - EXPIRED DRUG ADMINISTERED [None]
  - MAJOR DEPRESSION [None]
  - SUICIDE ATTEMPT [None]
  - TREATMENT NONCOMPLIANCE [None]
  - FALL [None]
  - PELVIC INFLAMMATORY DISEASE [None]
  - HUMAN PAPILLOMA VIRUS TEST POSITIVE [None]
  - ASTHENIA [None]
  - COORDINATION ABNORMAL [None]
  - ANHEDONIA [None]
  - FLANK PAIN [None]
  - CHOLELITHIASIS [None]
  - CONSTIPATION [None]
  - BLOOD TRIGLYCERIDES INCREASED [None]
  - PLEURITIC PAIN [None]
  - DYSPNOEA [None]
  - INSOMNIA [None]
  - ENDOMETRIOSIS [None]
  - SINUSITIS [None]
  - VARICOSE VEIN [None]
  - PANCREATITIS [None]
  - PAIN [None]
  - IMPAIRED WORK ABILITY [None]
  - DEHYDRATION [None]
  - BLOOD AMYLASE INCREASED [None]
  - CHOLECYSTITIS CHRONIC [None]
  - ANXIETY [None]
  - SEDATION [None]
  - COUGH [None]
  - HERPES SIMPLEX SEROLOGY POSITIVE [None]
  - ALCOHOL POISONING [None]
  - AGGRESSION [None]
  - PULMONARY EMBOLISM [None]
  - NEPHROLITHIASIS [None]
  - WEIGHT DECREASED [None]
  - DECREASED APPETITE [None]
  - FLATULENCE [None]
  - DEVICE BREAKAGE [None]
  - DYSMENORRHOEA [None]
  - LIPASE INCREASED [None]
  - DIARRHOEA [None]
  - PAIN IN EXTREMITY [None]
  - KERATOSIS PILARIS [None]
  - PRESYNCOPE [None]
  - CHEST PAIN [None]
